FAERS Safety Report 18018280 (Version 1)
Quarter: 2020Q3

REPORT INFORMATION
  Report Type: Spontaneous
  Country: FR (occurrence: FR)
  Receive Date: 20200714
  Receipt Date: 20200714
  Transmission Date: 20201103
  Serious: Yes (Hospitalization)
  Sender: FDA-Public Use
  Company Number: FR-ABBVIE-20K-056-3480395-00

PATIENT
  Age: 76 Year
  Sex: Male
  Weight: 73 kg

DRUGS (6)
  1. CEFOTAXIME [Suspect]
     Active Substance: CEFOTAXIME SODIUM
     Indication: SEPSIS
     Dosage: ADAPTATION ? 2G/J ? PARTIR DU 22/04/2020
     Route: 041
     Dates: start: 20200419
  2. ALUVIA 200/50 [Suspect]
     Active Substance: LOPINAVIR\RITONAVIR
     Indication: SUSPECTED COVID-19
     Route: 048
     Dates: start: 20200417, end: 20200422
  3. IOMERON [Suspect]
     Active Substance: IOMEPROL
     Indication: COMPUTERISED TOMOGRAM
     Route: 042
     Dates: start: 20200421, end: 20200421
  4. LEVOFLOXACINE HEMIHYDRATE [Suspect]
     Active Substance: LEVOFLOXACIN
     Indication: SEPSIS
     Dosage: ADAPTATION ? 250 MG/J ? PARTIR DU 22/04/2020
     Route: 048
     Dates: start: 20200419, end: 20200507
  5. LASILIX [Concomitant]
     Active Substance: FUROSEMIDE
     Indication: PRODUCT USED FOR UNKNOWN INDICATION
     Dosage: 60 MG IV LE 10/04; 40 MG PER OS LE 11/04/; 40 MG PER OS LE 12/04; 40 MG LE 14/04
     Dates: start: 20200410, end: 20200415
  6. KALETRA [Suspect]
     Active Substance: LOPINAVIR\RITONAVIR
     Indication: SUSPECTED COVID-19
     Route: 048
     Dates: start: 20200410, end: 20200417

REACTIONS (1)
  - Acute kidney injury [Recovering/Resolving]

NARRATIVE: CASE EVENT DATE: 20200421
